FAERS Safety Report 4461184-2 (Version None)
Quarter: 2004Q3

REPORT INFORMATION
  Report Type: 
  Country: None (occurrence: None)
  Receive Date: 20040923
  Receipt Date: 20040909
  Transmission Date: 20050211
  Serious: Yes (Hospitalization)
  Sender: FDA-Public Use
  Company Number: MET-US-04-00009

PATIENT
  Sex: Female

DRUGS (1)
  1. FORTAMET [Suspect]
     Dosage: DOSE UNKNOWN

REACTIONS (3)
  - CHEST PAIN [None]
  - DYSPNOEA [None]
  - OESOPHAGEAL SPASM [None]
